FAERS Safety Report 15451176 (Version 2)
Quarter: 2018Q4

REPORT INFORMATION
  Report Type: Spontaneous
  Country: US (occurrence: US)
  Receive Date: 20181001
  Receipt Date: 20181002
  Transmission Date: 20190204
  Serious: No
  Sender: FDA-Public Use
  Company Number: US-PFIZER INC-2018388463

PATIENT

DRUGS (1)
  1. BUPIVACAINE HCL [Suspect]
     Active Substance: BUPIVACAINE HYDROCHLORIDE
     Dosage: UNK (PRODUCT STRENGTH AND COUNT SIZE DISPENSED: 0.75% WITH A COMBINATION WITH DEXTROSE WITH 8.25%,C)

REACTIONS (1)
  - Drug ineffective [Unknown]
